FAERS Safety Report 4816084-2 (Version None)
Quarter: 2005Q4

REPORT INFORMATION
  Report Type: 
  Country: None (occurrence: None)
  Receive Date: 20051031
  Receipt Date: 20051020
  Transmission Date: 20060501
  Serious: Yes (Death)
  Sender: FDA-Public Use
  Company Number: US-BRISTOL-MYERS SQUIBB COMPANY-13155072

PATIENT
  Age: 42 Year
  Sex: Male

DRUGS (3)
  1. REYATAZ [Suspect]
     Dates: start: 20051014
  2. VIRACEPT [Concomitant]
  3. METOPROLOL [Concomitant]

REACTIONS (1)
  - DEATH [None]
